FAERS Safety Report 5839186-0 (Version None)
Quarter: 2008Q3

REPORT INFORMATION
  Report Type: 
  Country: None (occurrence: None)
  Receive Date: 20080808
  Receipt Date: 20080731
  Transmission Date: 20090109
  Serious: Yes (Death)
  Sender: FDA-Public Use
  Company Number: FR-MERCK-0808USA00103

PATIENT
  Age: 62 Year
  Sex: Male

DRUGS (1)
  1. DECADRON [Suspect]
     Indication: B-CELL LYMPHOMA STAGE III
     Route: 048
     Dates: start: 20030201

REACTIONS (1)
  - DRUG INEFFECTIVE [None]
